FAERS Safety Report 8411936-9 (Version None)
Quarter: 2012Q2

REPORT INFORMATION
  Report Type: 
  Country: None (occurrence: None)
  Receive Date: 20120605
  Receipt Date: 20120516
  Transmission Date: 20120825
  Serious: No
  Sender: FDA-Public Use
  Company Number: US-AMGEN-USASP2012030991

PATIENT
  Age: 62 Year
  Sex: Female

DRUGS (3)
  1. METHOTREXATE [Concomitant]
     Dosage: UNK
  2. ENBREL [Suspect]
     Indication: RHEUMATOID ARTHRITIS
     Dosage: 50 MG, QWK
     Dates: start: 20110903
  3. ARAVA [Concomitant]
     Dosage: UNK
     Dates: start: 20100101

REACTIONS (11)
  - FATIGUE [None]
  - THERAPEUTIC RESPONSE DECREASED [None]
  - DRY MOUTH [None]
  - CHILLS [None]
  - PYREXIA [None]
  - BLEPHARITIS [None]
  - SWOLLEN TONGUE [None]
  - PHARYNGEAL OEDEMA [None]
  - ORAL HERPES [None]
  - OROPHARYNGEAL PAIN [None]
  - DRY EYE [None]
